FAERS Safety Report 15120069 (Version 2)
Quarter: 2018Q3

REPORT INFORMATION
  Report Type: Spontaneous
  Country: ML (occurrence: ML)
  Receive Date: 20180709
  Receipt Date: 20180806
  Transmission Date: 20181010
  Serious: Yes (Death, Hospitalization)
  Sender: FDA-Public Use
  Company Number: PHHY2018ML037964

PATIENT
  Age: 44 Year
  Sex: Male
  Weight: 70 kg

DRUGS (1)
  1. GLIVEC [Suspect]
     Active Substance: IMATINIB MESYLATE
     Indication: CHRONIC MYELOID LEUKAEMIA
     Dosage: 600 MG, UNK
     Route: 048
     Dates: start: 20170201, end: 20180523

REACTIONS (8)
  - Bicytopenia [Fatal]
  - Pallor [Fatal]
  - Epistaxis [Fatal]
  - Asthenia [Fatal]
  - Anaemia [Fatal]
  - Mouth haemorrhage [Fatal]
  - General physical condition abnormal [Fatal]
  - Splenomegaly [Fatal]

NARRATIVE: CASE EVENT DATE: 20180518
